FAERS Safety Report 10204679 (Version 1)
Quarter: 2014Q2

REPORT INFORMATION
  Report Type: Spontaneous
  Country: US (occurrence: None)
  Receive Date: 20140527
  Receipt Date: 20140527
  Transmission Date: 20141212
  Serious: Yes (Other)
  Sender: FDA-Public Use
  Company Number: None

PATIENT
  Age: 60 Year
  Sex: Female
  Weight: 72.58 kg

DRUGS (1)
  1. PRISTIQ [Suspect]
     Indication: ANTIDEPRESSANT THERAPY
     Route: 048

REACTIONS (4)
  - Drug withdrawal syndrome [None]
  - Headache [None]
  - Eye pain [None]
  - Weight increased [None]
